FAERS Safety Report 24951652 (Version 2)
Quarter: 2025Q1

REPORT INFORMATION
  Report Type: Spontaneous
  Country: US (occurrence: US)
  Receive Date: 20250210
  Receipt Date: 20250224
  Transmission Date: 20250408
  Serious: Yes (Other)
  Sender: INTRA-CELLULAR THERAPIES
  Company Number: US-INTRA-CELLULAR THERAPIES, INC.-2024ICT01588

PATIENT
  Sex: Male
  Weight: 140.59 kg

DRUGS (7)
  1. CAPLYTA [Suspect]
     Active Substance: LUMATEPERONE
     Indication: Bipolar disorder
     Dosage: 42 MG, 1X/DAY EVERY NIGHT
     Route: 048
     Dates: start: 202409
  2. ADDERALL [Concomitant]
     Active Substance: AMPHETAMINE ASPARTATE\AMPHETAMINE SULFATE\DEXTROAMPHETAMINE SACCHARATE\DEXTROAMPHETAMINE SULFATE
  3. ENBREL [Concomitant]
     Active Substance: ETANERCEPT
  4. CELECOXIB [Concomitant]
     Active Substance: CELECOXIB
  5. BACLOFEN [Concomitant]
     Active Substance: BACLOFEN
  6. PANTOPRAZOLE [Concomitant]
     Active Substance: PANTOPRAZOLE
  7. METHOCARBAMOL [Concomitant]
     Active Substance: METHOCARBAMOL

REACTIONS (6)
  - Asphyxia [Unknown]
  - Hallucination, auditory [Unknown]
  - Enuresis [Recovered/Resolved]
  - Blunted affect [Unknown]
  - Somnolence [Recovering/Resolving]
  - Fatigue [Not Recovered/Not Resolved]

NARRATIVE: CASE EVENT DATE: 20240101
